FAERS Safety Report 11258539 (Version 1)
Quarter: 2015Q3

REPORT INFORMATION
  Report Type: Spontaneous
  Country: FI (occurrence: None)
  Receive Date: 20150708
  Receipt Date: 20150708
  Transmission Date: 20151125
  Serious: No
  Sender: FDA-Public Use
  Company Number: FI-LHC-2015077

PATIENT
  Sex: Female

DRUGS (1)
  1. NITROUS OXIDE/ OXYGEN [Suspect]
     Active Substance: NITROUS OXIDE\OXYGEN
     Indication: ANALGESIC THERAPY
     Dosage: INHALATION
     Route: 055

REACTIONS (3)
  - Loss of consciousness [None]
  - Seizure [None]
  - Maternal exposure during delivery [None]

NARRATIVE: CASE EVENT DATE: 20150417
